FAERS Safety Report 8023466-7 (Version None)
Quarter: 2012Q1

REPORT INFORMATION
  Report Type: 
  Country: None (occurrence: None)
  Receive Date: 20120105
  Receipt Date: 20111229
  Transmission Date: 20120608
  Serious: Yes (Other)
  Sender: FDA-Public Use
  Company Number: US-BIOGENIDEC-2011BI047653

PATIENT
  Age: 62 Year
  Sex: Female

DRUGS (2)
  1. AVONEX [Suspect]
     Indication: MULTIPLE SCLEROSIS
     Route: 030
     Dates: start: 20111116
  2. AVONEX [Suspect]
     Route: 030
     Dates: start: 20011001, end: 20110419

REACTIONS (4)
  - RECALL PHENOMENON [None]
  - BREAST CANCER STAGE II [None]
  - NEUROPATHY PERIPHERAL [None]
  - PARAESTHESIA [None]
